FAERS Safety Report 12459023 (Version 2)
Quarter: 2016Q3

REPORT INFORMATION
  Report Type: Spontaneous
  Country: FR (occurrence: FR)
  Receive Date: 20160613
  Receipt Date: 20160708
  Transmission Date: 20161109
  Serious: Yes (Death, Hospitalization, Other)
  Sender: FDA-Public Use
  Company Number: FR-AUROBINDO-AUR-APL-2016-07515

PATIENT
  Age: 16 Year
  Sex: Female

DRUGS (4)
  1. FENOFIBRATE. [Suspect]
     Active Substance: FENOFIBRATE
     Indication: PRODUCT USED FOR UNKNOWN INDICATION
     Route: 048
  2. COLCHICINE. [Suspect]
     Active Substance: COLCHICINE
     Indication: PYREXIA
     Dosage: 50-60 TABLETS OF 1MG
     Route: 048
  3. IBUPROFEN 400MG [Suspect]
     Active Substance: IBUPROFEN
     Indication: PRODUCT USED FOR UNKNOWN INDICATION
     Route: 048
  4. PREDNISONE TABLET 20MG [Suspect]
     Active Substance: PREDNISONE
     Indication: PRODUCT USED FOR UNKNOWN INDICATION
     Dosage: 20 TABLETS
     Route: 048

REACTIONS (20)
  - Multiple organ dysfunction syndrome [Unknown]
  - Respiratory distress [Unknown]
  - Renal impairment [Unknown]
  - Anuria [Unknown]
  - Cardiogenic shock [Unknown]
  - Hepatocellular injury [Unknown]
  - Acute kidney injury [Unknown]
  - Disseminated intravascular coagulation [Unknown]
  - Metabolic acidosis [Unknown]
  - Suicide attempt [Unknown]
  - Leukocytosis [Unknown]
  - Depressed level of consciousness [Unknown]
  - Hypertension [Unknown]
  - Thrombocytopenia [Unknown]
  - Vomiting [Unknown]
  - Intentional overdose [Unknown]
  - Ventricular dysfunction [Unknown]
  - Toxicity to various agents [Unknown]
  - Haemorrhage [Unknown]
  - Cardiac failure [Fatal]
